FAERS Safety Report 12799497 (Version 2)
Quarter: 2016Q4

REPORT INFORMATION
  Report Type: Spontaneous
  Country: US (occurrence: US)
  Receive Date: 20160930
  Receipt Date: 20161006
  Transmission Date: 20170207
  Serious: No
  Sender: FDA-Public Use
  Company Number: US-PFIZER INC-2016455740

PATIENT
  Age: 69 Year
  Sex: Male

DRUGS (1)
  1. XELJANZ [Suspect]
     Active Substance: TOFACITINIB CITRATE
     Indication: RHEUMATOID ARTHRITIS
     Dosage: 5 MG, 2X/DAY
     Route: 048
     Dates: start: 201608, end: 20160926

REACTIONS (10)
  - Bone pain [Unknown]
  - Headache [Unknown]
  - Incorrect dosage administered [Unknown]
  - Fatigue [Unknown]
  - Arthritis [Unknown]
  - Oropharyngeal pain [Unknown]
  - Myalgia [Unknown]
  - Swelling [Unknown]
  - Rhinorrhoea [Unknown]
  - Gait disturbance [Unknown]

NARRATIVE: CASE EVENT DATE: 201608
